FAERS Safety Report 10659851 (Version 1)
Quarter: 2014Q4

REPORT INFORMATION
  Report Type: Spontaneous
  Country: US (occurrence: US)
  Receive Date: 20141217
  Receipt Date: 20141217
  Transmission Date: 20150529
  Serious: No
  Sender: FDA-Public Use
  Company Number: US-SA-2014SA140718

PATIENT
  Age: 33 Year
  Sex: Female

DRUGS (2)
  1. IODINE (131 I) [Concomitant]
     Active Substance: SODIUM IODIDE I-131
     Dates: start: 20141008
  2. THYROGEN [Suspect]
     Active Substance: THYROTROPIN ALFA
     Indication: DIAGNOSTIC PROCEDURE
     Route: 065
     Dates: start: 20141006, end: 20141007

REACTIONS (2)
  - Local swelling [Unknown]
  - Swelling face [Unknown]

NARRATIVE: CASE EVENT DATE: 20141009
